FAERS Safety Report 8566826-8 (Version None)
Quarter: 2012Q3

REPORT INFORMATION
  Report Type: 
  Country: None (occurrence: None)
  Receive Date: 20120803
  Receipt Date: 20110818
  Transmission Date: 20120928
  Serious: No
  Sender: FDA-Public Use
  Company Number: US-ABBOTT-11P-163-0848113-00

PATIENT
  Sex: Female

DRUGS (4)
  1. ASPIRIN [Concomitant]
     Indication: PROPHYLAXIS
  2. ASPIRIN [Concomitant]
     Indication: FLUSHING
  3. NIASPAN [Suspect]
     Indication: PRODUCT USED FOR UNKNOWN INDICATION
     Dosage: 2000 MG
  4. TAMOXIFEN CITRATE [Concomitant]
     Indication: BREAST CANCER

REACTIONS (1)
  - FEELING HOT [None]
